FAERS Safety Report 5625979-1 (Version None)
Quarter: 2008Q1

REPORT INFORMATION
  Report Type: 
  Country: None (occurrence: None)
  Receive Date: 20080211
  Receipt Date: 20080109
  Transmission Date: 20080703
  Serious: Yes (Death, Hospitalization)
  Sender: FDA-Public Use
  Company Number: MEDI-0006537

PATIENT

DRUGS (2)
  1. SYNAGIS [Suspect]
     Indication: ANTIVIRAL PROPHYLAXIS
     Dosage: INTRAMUSCULAR, INTRAMUSCULAR
     Route: 030
     Dates: start: 20070101, end: 20070101
  2. SYNAGIS [Suspect]
     Indication: ANTIVIRAL PROPHYLAXIS
     Dosage: INTRAMUSCULAR, INTRAMUSCULAR
     Route: 030
     Dates: start: 20070101

REACTIONS (2)
  - DRUG DOSE OMISSION [None]
  - RESPIRATORY SYNCYTIAL VIRUS INFECTION [None]
